FAERS Safety Report 25874849 (Version 2)
Quarter: 2025Q4

REPORT INFORMATION
  Report Type: Report from Study
  Country: EU (occurrence: EU)
  Receive Date: 20251002
  Receipt Date: 20251202
  Transmission Date: 20260117
  Serious: Yes (Death, Hospitalization, Other)
  Sender: SYNDAX
  Company Number: EU-SYNDAX PHARMACEUTICALS, INC.-2025NL000765

PATIENT
  Age: 49 Year
  Sex: Female
  Weight: 69 kg

DRUGS (5)
  1. REVUMENIB SESQUIFUMARATE [Suspect]
     Active Substance: REVUMENIB SESQUIFUMARATE
     Indication: Acute myeloid leukaemia refractory
     Dosage: 160 MILLIGRAM, EVERY 12 HOURS (Q12H)
     Route: 048
     Dates: start: 20250912, end: 20250919
  2. OMEPRAZOLE [Concomitant]
     Active Substance: OMEPRAZOLE
     Indication: Product used for unknown indication
     Dosage: 40 MILLIGRAM, BID
     Route: 048
     Dates: start: 20250903
  3. POSACONAZOLE [Concomitant]
     Active Substance: POSACONAZOLE
     Indication: Product used for unknown indication
     Dosage: 300 MILLIGRAM, DAILY
     Route: 048
     Dates: start: 20250718
  4. LAMOTRIGINE [Concomitant]
     Active Substance: LAMOTRIGINE
     Indication: Product used for unknown indication
     Dosage: 150 MILLIGRAM, BID
     Route: 048
     Dates: start: 20250703
  5. BRIVARACETAM [Concomitant]
     Active Substance: BRIVARACETAM
     Indication: Product used for unknown indication
     Dosage: 25 MILLIGRAM, TID
     Route: 048
     Dates: start: 20250703

REACTIONS (4)
  - Hyperbilirubinaemia [Not Recovered/Not Resolved]
  - Differentiation syndrome [Recovered/Resolved]
  - Pseudomonal sepsis [Fatal]
  - Shock [Fatal]

NARRATIVE: CASE EVENT DATE: 20250919
